FAERS Safety Report 20554047 (Version 1)
Quarter: 2022Q1

REPORT INFORMATION
  Report Type: Spontaneous
  Country: US (occurrence: None)
  Receive Date: 20220304
  Receipt Date: 20220304
  Transmission Date: 20220424
  Serious: Yes (Hospitalization)
  Sender: FDA-Public Use
  Company Number: None

PATIENT
  Sex: Female

DRUGS (2)
  1. DECITABINE [Suspect]
     Active Substance: DECITABINE
     Indication: Myelofibrosis
     Dosage: OTHER FREQUENCY : DAILY 5D PER 28D;?
     Route: 042
     Dates: start: 20210315
  2. NEUPOGEN [Suspect]
     Active Substance: FILGRASTIM
     Indication: Myelofibrosis
     Dosage: OTHER FREQUENCY : AFTER CHEMO Q28D;?
     Route: 030
     Dates: start: 20210315

REACTIONS (6)
  - Fatigue [None]
  - Platelet count increased [None]
  - White blood cell count decreased [None]
  - Haemoglobin decreased [None]
  - Gastrointestinal haemorrhage [None]
  - Intracardiac thrombus [None]
